FAERS Safety Report 7958071-1 (Version None)
Quarter: 2011Q4

REPORT INFORMATION
  Report Type: 
  Country: None (occurrence: None)
  Receive Date: 20111201
  Receipt Date: 20111122
  Transmission Date: 20120403
  Serious: Yes (Hospitalization)
  Sender: FDA-Public Use
  Company Number: VISP-NO-1110S-0423

PATIENT
  Age: 54 Year
  Sex: Female

DRUGS (6)
  1. POLARAMINE [Suspect]
     Dates: start: 20111013, end: 20111013
  2. KETOPROFEN [Suspect]
     Dates: start: 20111013, end: 20111013
  3. DEXAMETHASONE [Suspect]
     Dates: start: 20111013, end: 20111013
  4. ACETAMINOPHEN [Suspect]
     Dates: start: 20111013, end: 20111013
  5. ERBITUX [Suspect]
     Dates: start: 20111013, end: 20111013
  6. VISIPAQUE [Suspect]
     Indication: PRODUCT USED FOR UNKNOWN INDICATION
     Dosage: SINGLE DOSE, INTRAVENOUS
     Route: 042
     Dates: start: 20111014, end: 20111014

REACTIONS (5)
  - DEVICE LEAKAGE [None]
  - INFUSION SITE EXTRAVASATION [None]
  - MUSCULOSKELETAL PAIN [None]
  - BURNING SENSATION [None]
  - PAIN IN EXTREMITY [None]
